FAERS Safety Report 14629002 (Version 1)
Quarter: 2018Q1

REPORT INFORMATION
  Report Type: Report from Study
  Country: None (occurrence: US)
  Receive Date: 20180313
  Receipt Date: 20180313
  Transmission Date: 20180509
  Serious: Yes (Hospitalization, Other)
  Sender: FDA-Public Use
  Company Number: US-ABBVIE-18K-163-2269487-00

PATIENT
  Age: 62 Year
  Sex: Female
  Weight: 56.75 kg

DRUGS (2)
  1. HUMIRA [Suspect]
     Active Substance: ADALIMUMAB
     Indication: CROHN^S DISEASE
     Route: 058
     Dates: end: 2017
  2. HUMIRA [Suspect]
     Active Substance: ADALIMUMAB
     Route: 058
     Dates: start: 2017, end: 201802

REACTIONS (10)
  - Meniscus injury [Unknown]
  - Crohn^s disease [Recovered/Resolved with Sequelae]
  - Gastric ulcer [Recovering/Resolving]
  - Gastrointestinal inflammation [Recovering/Resolving]
  - Cataract [Unknown]
  - Complex regional pain syndrome [Not Recovered/Not Resolved]
  - Nausea [Recovering/Resolving]
  - Macular degeneration [Unknown]
  - Scoliosis [Not Recovered/Not Resolved]
  - Blood potassium decreased [Recovered/Resolved]

NARRATIVE: CASE EVENT DATE: 2012
